FAERS Safety Report 6253595-X (Version None)
Quarter: 2009Q2

REPORT INFORMATION
  Report Type: 
  Country: None (occurrence: None)
  Receive Date: 20090630
  Receipt Date: 20090612
  Transmission Date: 20091009
  Serious: Yes (Hospitalization)
  Sender: FDA-Public Use
  Company Number: M-09-0525

PATIENT
  Age: 60 Year
  Sex: Male

DRUGS (5)
  1. SLO-NIACIN           TABLETS 500 MG (USL) [Suspect]
     Indication: BLOOD CHOLESTEROL INCREASED
     Dosage: 500MG, QD, PO
     Route: 048
     Dates: start: 20090502, end: 20090505
  2. LISINOPRIL [Concomitant]
  3. OMEPRAZOLE [Concomitant]
  4. ASPIRIN [Concomitant]
  5. DIPHENHYDRAMINE HCL [Concomitant]

REACTIONS (7)
  - BURNING SENSATION [None]
  - DIZZINESS [None]
  - DYSPNOEA [None]
  - HEART RATE INCREASED [None]
  - OEDEMA PERIPHERAL [None]
  - PAIN [None]
  - STEVENS-JOHNSON SYNDROME [None]
